FAERS Safety Report 9694384 (Version 5)
Quarter: 2014Q4

REPORT INFORMATION
  Report Type: Report from Study
  Country: DE (occurrence: DE)
  Receive Date: 20131118
  Receipt Date: 20141127
  Transmission Date: 20150529
  Serious: Yes (Death, Hospitalization)
  Sender: FDA-Public Use
  Company Number: DE-ROCHE-1284097

PATIENT
  Age: 75 Year
  Sex: Male
  Weight: 67 kg

DRUGS (9)
  1. BEVACIZUMAB [Suspect]
     Active Substance: BEVACIZUMAB
     Indication: COLORECTAL CANCER
     Dosage: ON 03/SEP2013 THE LAST DOSE OF BEVACIZUMAB WAS GIVEN PRIOR TO THE EVENT.
     Route: 042
     Dates: start: 20130903, end: 20130903
  2. FOLINIC ACID [Suspect]
     Active Substance: LEUCOVORIN
     Indication: COLORECTAL CANCER
     Route: 042
     Dates: start: 20130903
  3. FLUOROURACIL. [Suspect]
     Active Substance: FLUOROURACIL
     Route: 040
     Dates: start: 20130903, end: 20130903
  4. FLUOROURACIL. [Suspect]
     Active Substance: FLUOROURACIL
     Indication: COLORECTAL CANCER
     Dosage: ON 05/SEP/2013 THE LAST DOSE OF FLUOROURACIL WAS GIVEN PRIOR TO THE EVENT.
     Route: 042
     Dates: start: 20130903, end: 20131005
  5. FLUOROURACIL. [Suspect]
     Active Substance: FLUOROURACIL
     Route: 041
     Dates: start: 20130903, end: 20130905
  6. PANTOPRAZOLE [Concomitant]
     Active Substance: PANTOPRAZOLE SODIUM
     Route: 048
  7. IRINOTECAN [Suspect]
     Active Substance: IRINOTECAN
     Indication: COLORECTAL CANCER
     Dosage: ON 03/SEP2013 THE LAST DOSE OF IRINOTECAN WAS GIVEN PRIOR TO THE EVENT.
     Route: 042
     Dates: start: 20130903, end: 20130903
  8. ENALAPRIL [Concomitant]
     Active Substance: ENALAPRIL
     Indication: HYPERTENSION
     Route: 048
     Dates: start: 20130714
  9. SIMVASTATIN. [Concomitant]
     Active Substance: SIMVASTATIN
     Route: 048
     Dates: start: 2013

REACTIONS (5)
  - Diarrhoea [Recovered/Resolved]
  - General physical health deterioration [Not Recovered/Not Resolved]
  - Malignant neoplasm progression [Fatal]
  - Pneumonia [Not Recovered/Not Resolved]
  - Dyspnoea [Not Recovered/Not Resolved]

NARRATIVE: CASE EVENT DATE: 20130915
